FAERS Safety Report 7447711-1 (Version None)
Quarter: 2011Q2

REPORT INFORMATION
  Report Type: 
  Country: None (occurrence: None)
  Receive Date: 20110429
  Receipt Date: 20100804
  Transmission Date: 20111010
  Serious: No
  Sender: FDA-Public Use
  Company Number: US-ASTRAZENECA-2010SE36531

PATIENT
  Age: 66 Year
  Sex: Female
  Weight: 63 kg

DRUGS (2)
  1. NEXIUM [Suspect]
     Route: 048
  2. NEXIUM [Suspect]
     Indication: GASTROOESOPHAGEAL REFLUX DISEASE
     Route: 048
     Dates: start: 20010101

REACTIONS (6)
  - VITAMIN B12 DEFICIENCY [None]
  - NEUROPATHY PERIPHERAL [None]
  - MALABSORPTION [None]
  - RHEUMATOID ARTHRITIS [None]
  - OSTEOPOROSIS [None]
  - RENAL DISORDER [None]
